FAERS Safety Report 13502106 (Version 1)
Quarter: 2017Q2

REPORT INFORMATION
  Report Type: Spontaneous
  Country: BG (occurrence: BG)
  Receive Date: 20170502
  Receipt Date: 20170502
  Transmission Date: 20170830
  Serious: Yes (Hospitalization)
  Sender: FDA-Public Use
  Company Number: BG-ROCHE-1923513

PATIENT
  Age: 66 Year
  Sex: Female

DRUGS (14)
  1. LIRICA [Concomitant]
     Active Substance: PREGABALIN
     Dosage: 75 MG TWICE DAILY
     Route: 065
  2. L-THYROXIN [Concomitant]
     Active Substance: LEVOTHYROXINE SODIUM
  3. TERTENSIF SR [Concomitant]
     Indication: HYPERTENSION
     Dosage: ONCE DAILY IN THE MORNING
     Route: 048
  4. METHYLPREDNISOLONE. [Concomitant]
     Active Substance: METHYLPREDNISOLONE
     Route: 065
  5. DEXKETOPROFEN [Concomitant]
     Active Substance: DEXKETOPROFEN
     Dosage: 2 X 1
     Route: 065
  6. DIAPREL MR [Concomitant]
     Active Substance: GLICLAZIDE
  7. VIGANTOL [Concomitant]
     Active Substance: CHOLECALCIFEROL
  8. MEDROL [Concomitant]
     Active Substance: METHYLPREDNISOLONE
     Indication: RHEUMATOID ARTHRITIS
     Dosage: 2 TABLETS DAILY
     Route: 048
  9. TENAXUM [Concomitant]
     Active Substance: RILMENIDINE
     Indication: DUODENAL ULCER
     Dosage: 1 TABL. IN THE MORNING, 1 TABL. IN THE EVENING
     Route: 048
  10. OXYCONTIN [Concomitant]
     Active Substance: OXYCODONE HYDROCHLORIDE
     Dosage: 2 X 10 MG
     Route: 065
  11. MANNITOL. [Concomitant]
     Active Substance: MANNITOL
     Dosage: 2 X 250 ML
     Route: 065
  12. MABTHERA [Suspect]
     Active Substance: RITUXIMAB
     Indication: RHEUMATOID ARTHRITIS
     Dosage: TWICE MONTHLY (ON 1ST AND 15TH DAY OF THE MONTH)
     Route: 042
     Dates: start: 20160910, end: 2017
  13. ROACTEMRA [Suspect]
     Active Substance: TOCILIZUMAB
     Indication: RHEUMATOID ARTHRITIS
     Dosage: ONCE WEEKLY
     Route: 058
     Dates: start: 201508, end: 201510
  14. ISOPHANE INSULIN [Concomitant]
     Active Substance: INSULIN NOS
     Indication: DIABETES MELLITUS
     Dosage: 16 IU S.C. DAILY IN THE MORNING
     Route: 058

REACTIONS (9)
  - Toe amputation [Recovered/Resolved]
  - Aphthous ulcer [Recovered/Resolved]
  - Nasal ulcer [Recovered/Resolved]
  - Pruritus [Recovered/Resolved]
  - Peau d^orange [Recovered/Resolved]
  - Wound infection [Recovered/Resolved]
  - Arthralgia [Recovering/Resolving]
  - Musculoskeletal stiffness [Recovering/Resolving]
  - Oedema [Recovered/Resolved]

NARRATIVE: CASE EVENT DATE: 201508
